FAERS Safety Report 5854000-5 (Version None)
Quarter: 2008Q3

REPORT INFORMATION
  Report Type: 
  Country: None (occurrence: None)
  Receive Date: 20080822
  Receipt Date: 20080819
  Transmission Date: 20090109
  Serious: Yes (Other)
  Sender: FDA-Public Use
  Company Number: DE-ROCHE-529962

PATIENT
  Sex: Female
  Weight: 68 kg

DRUGS (1)
  1. LARIAM [Suspect]
     Indication: DRUG USE FOR UNKNOWN INDICATION
     Dosage: ON AN UNSPECIFIED DATE, THE PATIENT RECEIVED 4TH TO LAST DOSE.
     Route: 065

REACTIONS (1)
  - ABORTION SPONTANEOUS [None]
